FAERS Safety Report 12629236 (Version 1)
Quarter: 2016Q3

REPORT INFORMATION
  Report Type: Spontaneous
  Country: US (occurrence: US)
  Receive Date: 20160808
  Receipt Date: 20160808
  Transmission Date: 20161109
  Serious: Yes (Other)
  Sender: FDA-Public Use
  Company Number: US-AMGEN-USASP2016099900

PATIENT
  Sex: Female

DRUGS (1)
  1. XGEVA [Suspect]
     Active Substance: DENOSUMAB
     Indication: INVASIVE LOBULAR BREAST CARCINOMA
     Dosage: UNK
     Route: 065

REACTIONS (1)
  - Breast cancer metastatic [Not Recovered/Not Resolved]
